FAERS Safety Report 12842890 (Version 1)
Quarter: 2016Q4

REPORT INFORMATION
  Report Type: Spontaneous
  Country: IT (occurrence: IT)
  Receive Date: 20161013
  Receipt Date: 20161013
  Transmission Date: 20170207
  Serious: Yes (Hospitalization)
  Sender: FDA-Public Use
  Company Number: IT-AUROBINDO-AUR-APL-2016-12352

PATIENT
  Age: 39 Year
  Sex: Male

DRUGS (3)
  1. MUTABON [Suspect]
     Active Substance: AMITRIPTYLINE HYDROCHLORIDE\PERPHENAZINE
     Indication: ANXIETY
     Dosage: UNK, DAILY
     Route: 048
     Dates: start: 2011, end: 201312
  2. GABAPENTIN. [Suspect]
     Active Substance: GABAPENTIN
     Indication: PRODUCT USED FOR UNKNOWN INDICATION
     Dosage: 600 MG, 3 TIMES A DAY
     Route: 065
  3. BRINTELLIX [Suspect]
     Active Substance: VORTIOXETINE HYDROBROMIDE
     Indication: PRODUCT USED FOR UNKNOWN INDICATION
     Dosage: 10 MG, ONCE A DAY
     Route: 065

REACTIONS (15)
  - Vomiting [Unknown]
  - Asthenia [Unknown]
  - Derealisation [Unknown]
  - Dysgeusia [Unknown]
  - Paraesthesia [Unknown]
  - Muscle rigidity [Unknown]
  - Syncope [Unknown]
  - Hallucination, auditory [Unknown]
  - Vertigo [Unknown]
  - Loss of consciousness [Unknown]
  - Parosmia [Unknown]
  - Toxicity to various agents [Recovered/Resolved with Sequelae]
  - Headache [Unknown]
  - General physical health deterioration [Unknown]
  - Suicidal ideation [Not Recovered/Not Resolved]

NARRATIVE: CASE EVENT DATE: 2011
